FAERS Safety Report 25837344 (Version 2)
Quarter: 2025Q3

REPORT INFORMATION
  Report Type: Report from Study
  Country: US (occurrence: US)
  Receive Date: 20250923
  Receipt Date: 20250926
  Transmission Date: 20251021
  Serious: Yes (Hospitalization, Other)
  Sender: MERCK SHARP & DOHME LLC
  Company Number: US-009507513-2329790

PATIENT
  Age: 79 Year
  Sex: Female
  Weight: 106.59 kg

DRUGS (1)
  1. SITAGLIPTIN PHOSPHATE [Suspect]
     Active Substance: SITAGLIPTIN PHOSPHATE
     Indication: Type 2 diabetes mellitus
     Dosage: TAKE ONE TABLET BY MOUTH DAILY/TAKE 1 TABLET (100 TOTAL) MG BY MOUTH DAILY.
     Route: 048

REACTIONS (13)
  - Rib fracture [Unknown]
  - Fall [Unknown]
  - Urinary tract infection [Unknown]
  - Hyponatraemia [Unknown]
  - Hypomagnesaemia [Unknown]
  - Cholelithiasis [Unknown]
  - Aortic arteriosclerosis [Unknown]
  - Blood chloride abnormal [Unknown]
  - Intervertebral disc operation [Unknown]
  - Pancreatic steatosis [Unknown]
  - Diverticulum intestinal [Unknown]
  - Hysterectomy [Unknown]
  - Atelectasis [Unknown]

NARRATIVE: CASE EVENT DATE: 20250701
